FAERS Safety Report 9382032 (Version 2)
Quarter: 2013Q3

REPORT INFORMATION
  Report Type: Spontaneous
  Country: US (occurrence: US)
  Receive Date: 20130703
  Receipt Date: 20130729
  Transmission Date: 20140515
  Serious: Yes (Other)
  Sender: FDA-Public Use
  Company Number: US-PFIZER INC-2013194338

PATIENT
  Sex: Female

DRUGS (1)
  1. FIBERCON [Suspect]
     Indication: PROPHYLAXIS
     Dosage: UNK, DAILY

REACTIONS (6)
  - Expired drug administered [Unknown]
  - Cystitis interstitial [Unknown]
  - Bladder irritation [Unknown]
  - Asthma [Unknown]
  - Dysphonia [Unknown]
  - Pain [Unknown]
